FAERS Safety Report 24831789 (Version 1)
Quarter: 2025Q1

REPORT INFORMATION
  Report Type: Spontaneous
  Country: IQ (occurrence: None)
  Receive Date: 20250109
  Receipt Date: 20250109
  Transmission Date: 20250409
  Serious: Yes (Other)
  Sender: FDA-CTU
  Company Number: None

PATIENT
  Age: 41 Year
  Sex: Male
  Weight: 90 kg

DRUGS (4)
  1. PANTOPRAZOLE [Suspect]
     Active Substance: PANTOPRAZOLE
  2. OMEPRAZOLE [Suspect]
     Active Substance: OMEPRAZOLE
  3. ZANTAC [Suspect]
     Active Substance: RANITIDINE HYDROCHLORIDE
  4. FAMOTIDINE [Suspect]
     Active Substance: FAMOTIDINE

REACTIONS (4)
  - Osteoporosis [None]
  - Blood calcium decreased [None]
  - Vitamin D decreased [None]
  - Musculoskeletal disorder [None]

NARRATIVE: CASE EVENT DATE: 20230905
